FAERS Safety Report 24864697 (Version 4)
Quarter: 2025Q1

REPORT INFORMATION
  Report Type: Spontaneous
  Country: FR (occurrence: FR)
  Receive Date: 20250121
  Receipt Date: 20250131
  Transmission Date: 20250408
  Serious: Yes (Other)
  Sender: AUROBINDO
  Company Number: FR-AUROBINDO-AUR-APL-2024-063410

PATIENT
  Age: 71 Year
  Sex: Male

DRUGS (2)
  1. APIXABAN [Suspect]
     Active Substance: APIXABAN
     Indication: Sneddon^s syndrome
     Route: 065
  2. ENOXAPARIN [Suspect]
     Active Substance: ENOXAPARIN
     Indication: Sneddon^s syndrome
     Route: 065

REACTIONS (4)
  - Anaemia [Unknown]
  - Gastrointestinal haemorrhage [Unknown]
  - Bullous haemorrhagic dermatosis [Recovering/Resolving]
  - Skin lesion [Recovering/Resolving]
